FAERS Safety Report 18338303 (Version 1)
Quarter: 2020Q4

REPORT INFORMATION
  Report Type: Spontaneous
  Country: GB (occurrence: GB)
  Receive Date: 20201002
  Receipt Date: 20201002
  Transmission Date: 20210113
  Serious: Yes (Other)
  Sender: FDA-Public Use
  Company Number: GB-NOVOPROD-754985

PATIENT
  Age: 69 Year
  Sex: Female
  Weight: 62 kg

DRUGS (1)
  1. VAGIFEM [Suspect]
     Active Substance: ESTRADIOL
     Indication: VULVOVAGINAL DRYNESS
     Dosage: 10 UG
     Route: 067
     Dates: start: 202001, end: 202008

REACTIONS (3)
  - Vulvovaginal erythema [Not Recovered/Not Resolved]
  - Vulvovaginal discomfort [Not Recovered/Not Resolved]
  - Vulvovaginal rash [Not Recovered/Not Resolved]

NARRATIVE: CASE EVENT DATE: 202008
